FAERS Safety Report 21139907 (Version 1)
Quarter: 2022Q3

REPORT INFORMATION
  Report Type: Other
  Country: US (occurrence: US)
  Receive Date: 20220728
  Receipt Date: 20220728
  Transmission Date: 20221027
  Serious: Yes (Hospitalization, Other)
  Sender: FDA-Public Use
  Company Number: US-PTx-2022000047

PATIENT
  Age: 15 Year
  Sex: Female

DRUGS (4)
  1. LEUKINE [Suspect]
     Active Substance: SARGRAMOSTIM
     Indication: Brain neoplasm
     Dosage: 250 MCG/M2 SUBCUTANEOUSLY ON DAY 1 AND DAY 2
     Route: 058
  2. PELAREOREP [Suspect]
     Active Substance: PELAREOREP
     Indication: Brain neoplasm
     Dosage: 1;3?108(TCID)50/KG.
     Route: 042
  3. AMITRIPTYLINE [Concomitant]
     Active Substance: AMITRIPTYLINE
     Indication: Product used for unknown indication
  4. OXCARBAZEPINE [Concomitant]
     Active Substance: OXCARBAZEPINE
     Indication: Product used for unknown indication

REACTIONS (3)
  - Hyponatraemia [Unknown]
  - Hemiparesis [Unknown]
  - Confusional state [Unknown]
